FAERS Safety Report 20944782 (Version 1)
Quarter: 2022Q2

REPORT INFORMATION
  Report Type: Spontaneous
  Country: US (occurrence: US)
  Receive Date: 20220610
  Receipt Date: 20220610
  Transmission Date: 20220721
  Serious: Yes (Other)
  Sender: FDA-Public Use
  Company Number: US-009507513-2206USA002651

PATIENT
  Age: 25 Year
  Sex: Male

DRUGS (2)
  1. RECARBRIO [Suspect]
     Active Substance: CILASTATIN\IMIPENEM ANHYDROUS\RELEBACTAM ANHYDROUS
     Indication: Pseudomonas infection
     Dosage: DOSE UNKNOWN; ON DAY 23
  2. RECARBRIO [Suspect]
     Active Substance: CILASTATIN\IMIPENEM ANHYDROUS\RELEBACTAM ANHYDROUS
     Indication: Osteomyelitis

REACTIONS (2)
  - Pathogen resistance [Unknown]
  - Product use in unapproved indication [Unknown]
